FAERS Safety Report 9082041 (Version 1)
Quarter: 2013Q1

REPORT INFORMATION
  Report Type: Report from Study
  Country: US (occurrence: US)
  Receive Date: 20130130
  Receipt Date: 20130130
  Transmission Date: 20140127
  Serious: No
  Sender: FDA-Public Use
  Company Number: US-ABBOTT-12P-163-0973560-00

PATIENT
  Age: 35 Year
  Sex: Female

DRUGS (5)
  1. HUMIRA 40 MG/0.8 ML PEN [Suspect]
     Indication: RHEUMATOID ARTHRITIS
     Dates: start: 201208
  2. VITAMIN D [Concomitant]
     Indication: VITAMIN D DECREASED
     Dosage: DAILY
  3. BENADRYL [Concomitant]
     Indication: SINUS CONGESTION
  4. BENADRYL [Concomitant]
     Indication: SEASONAL ALLERGY
  5. ALBUTEROL [Concomitant]
     Indication: ASTHMA EXERCISE INDUCED

REACTIONS (1)
  - Injection site rash [Not Recovered/Not Resolved]
